FAERS Safety Report 5971287-9 (Version None)
Quarter: 2008Q4

REPORT INFORMATION
  Report Type: 
  Country: None (occurrence: None)
  Receive Date: 20081128
  Receipt Date: 20081121
  Transmission Date: 20090506
  Serious: Yes (Other)
  Sender: FDA-Public Use
  Company Number: JP-PFIZER INC-2008083134

PATIENT
  Sex: Male
  Weight: 52 kg

DRUGS (4)
  1. SUTENT [Suspect]
     Indication: RENAL CELL CARCINOMA
     Route: 048
     Dates: start: 20080804, end: 20080827
  2. SUTENT [Suspect]
     Route: 048
     Dates: start: 20080916, end: 20080930
  3. LOXONIN [Concomitant]
     Dosage: TEXT:180 MG-FREQ:THREE TIMES DAILY
     Route: 048
     Dates: start: 20080717, end: 20080828
  4. TAKEPRON [Concomitant]
     Route: 048
     Dates: start: 20080717, end: 20080828

REACTIONS (2)
  - HYPERURICAEMIA [None]
  - OROPHARYNGEAL PAIN [None]
